FAERS Safety Report 9448181 (Version 1)
Quarter: 2013Q3

REPORT INFORMATION
  Report Type: Spontaneous
  Country: IT (occurrence: IT)
  Receive Date: 20130808
  Receipt Date: 20130808
  Transmission Date: 20140515
  Serious: Yes (Other)
  Sender: FDA-Public Use
  Company Number: IT-ROCHE-1258226

PATIENT
  Age: 48 Year
  Sex: Female
  Weight: 59 kg

DRUGS (3)
  1. TOCILIZUMAB [Suspect]
     Indication: RHEUMATOID ARTHRITIS
     Route: 042
     Dates: start: 20110701, end: 20120606
  2. METHOTREXATE [Concomitant]
     Route: 065
     Dates: start: 20060401, end: 20130723
  3. METILPREDNISOLONE [Concomitant]
     Route: 065
     Dates: start: 20111201, end: 20130723

REACTIONS (6)
  - Agitation [Recovered/Resolved]
  - Eczema nummular [Recovered/Resolved]
  - Erythema [Recovered/Resolved]
  - Paraesthesia [Unknown]
  - Pharyngeal oedema [Unknown]
  - Tremor [Recovered/Resolved]
